FAERS Safety Report 5526813-0 (Version None)
Quarter: 2007Q4

REPORT INFORMATION
  Report Type: 
  Country: None (occurrence: None)
  Receive Date: 20071127
  Receipt Date: 20071118
  Transmission Date: 20080405
  Serious: Yes (Other)
  Sender: FDA-Public Use
  Company Number: US-JNJFOC-20071107275

PATIENT
  Age: 77 Year
  Sex: Male
  Weight: 82.1 kg

DRUGS (5)
  1. IMODIUM A-D [Suspect]
     Route: 048
  2. IMODIUM A-D [Suspect]
     Indication: DIARRHOEA
     Route: 048
  3. LORAZEPAM [Suspect]
     Indication: FEELING OF RELAXATION
  4. LISINOPRIL [Concomitant]
     Indication: HYPERTENSION
  5. FLOMAX [Concomitant]

REACTIONS (3)
  - BENIGN PROSTATIC HYPERPLASIA [None]
  - DYSURIA [None]
  - GASTROINTESTINAL DISORDER [None]
